FAERS Safety Report 4738561-5 (Version None)
Quarter: 2005Q3

REPORT INFORMATION
  Report Type: 
  Country: None (occurrence: None)
  Receive Date: 20050809
  Receipt Date: 20050204
  Transmission Date: 20060218
  Serious: Yes (Death, Hospitalization)
  Sender: FDA-Public Use
  Company Number: 2005UW02296

PATIENT
  Age: 73 Year
  Sex: Female

DRUGS (7)
  1. FASLODEX [Suspect]
     Indication: BREAST CANCER
     Dosage: AMPULE
     Route: 030
     Dates: start: 20050126, end: 20050126
  2. ZOMETA [Suspect]
     Indication: METASTASIS
     Dosage: AMPULE
     Route: 042
     Dates: start: 20050119, end: 20050119
  3. NOLVADEX [Concomitant]
     Indication: BREAST CANCER
     Dates: start: 20030507, end: 20041111
  4. CYCLOPHOSPHAMIDE [Concomitant]
     Indication: BREAST CANCER
     Dates: start: 20030507, end: 20041111
  5. CYCLOPHOSPHAMIDE [Concomitant]
     Dates: start: 20030507, end: 20041111
  6. METHOTREXATE [Concomitant]
     Indication: BREAST CANCER
     Dates: start: 20030507, end: 20041111
  7. FOSAMAX [Concomitant]

REACTIONS (6)
  - ABDOMINAL PAIN [None]
  - ANAEMIA [None]
  - CARDIAC FAILURE [None]
  - GASTROINTESTINAL HAEMORRHAGE [None]
  - PLATELET COUNT DECREASED [None]
  - RENAL FAILURE [None]
